FAERS Safety Report 4878703-4 (Version None)
Quarter: 2006Q1

REPORT INFORMATION
  Report Type: 
  Country: None (occurrence: None)
  Receive Date: 20060112
  Receipt Date: 20051220
  Transmission Date: 20060701
  Serious: Yes (Death, Hospitalization)
  Sender: FDA-Public Use
  Company Number: US-AVENTIS-200521190GDDC

PATIENT
  Age: 37 Year
  Sex: Female
  Weight: 101 kg

DRUGS (12)
  1. DOCETAXEL [Suspect]
     Indication: BREAST CANCER
     Route: 042
     Dates: start: 20051212, end: 20051212
  2. ALOXI [Concomitant]
     Route: 042
  3. GLUCOPHAGE [Concomitant]
     Indication: DIABETES MELLITUS
     Route: 048
  4. DECADRON [Concomitant]
     Route: 042
  5. NEULASTA [Concomitant]
     Route: 058
     Dates: start: 20051018
  6. NEULASTA [Concomitant]
     Route: 058
     Dates: start: 20051031, end: 20051213
  7. ARANESP [Concomitant]
     Route: 058
     Dates: start: 20051017, end: 20051128
  8. LORTAB [Concomitant]
     Indication: PAIN
     Dosage: DOSE: 7.5MG/ 325 MG EVERY 4-6 HOURS
  9. LEVAQUIN [Concomitant]
     Indication: INFECTION
     Dates: start: 20051204, end: 20051211
  10. LEVAQUIN [Concomitant]
     Indication: NASOPHARYNGITIS
     Dates: start: 20051204, end: 20051211
  11. AMOXICILLIN AND CLAVULANATE POTASSIUM [Concomitant]
     Indication: INFECTION
     Dates: start: 20051205, end: 20051212
  12. AMOXICILLIN AND CLAVULANATE POTASSIUM [Concomitant]
     Indication: NASOPHARYNGITIS
     Dates: start: 20051205, end: 20051212

REACTIONS (17)
  - ASPARTATE AMINOTRANSFERASE INCREASED [None]
  - BLOOD ALKALINE PHOSPHATASE INCREASED [None]
  - CARDIAC ARREST [None]
  - DIABETIC KETOACIDOSIS [None]
  - GLYCOSYLATED HAEMOGLOBIN INCREASED [None]
  - HYPOTENSION [None]
  - INTESTINAL GANGRENE [None]
  - INTESTINAL ISCHAEMIA [None]
  - INTESTINAL PERFORATION [None]
  - LACTIC ACIDOSIS [None]
  - METABOLIC ACIDOSIS [None]
  - NAUSEA [None]
  - PLATELET COUNT DECREASED [None]
  - RENAL FAILURE [None]
  - SEPSIS [None]
  - VENTRICULAR FIBRILLATION [None]
  - VENTRICULAR TACHYCARDIA [None]
